FAERS Safety Report 7078623-3 (Version None)
Quarter: 2010Q4

REPORT INFORMATION
  Report Type: 
  Country: None (occurrence: None)
  Receive Date: 20101102
  Receipt Date: 20101022
  Transmission Date: 20110411
  Serious: Yes (Life-Threatening, Hospitalization)
  Sender: FDA-Public Use
  Company Number: TH-ELI_LILLY_AND_COMPANY-TH201010005451

PATIENT
  Age: 83 Year
  Sex: Female

DRUGS (7)
  1. FORTEO [Suspect]
     Indication: OSTEOPOROSIS
     Dosage: 20 UG, DAILY (1/D)
     Route: 058
     Dates: start: 20100101, end: 20100601
  2. BERODUAL [Concomitant]
     Dosage: UNK, UNKNOWN
  3. SERETIDE [Concomitant]
     Dosage: UNK, UNKNOWN
  4. DIOVAN [Concomitant]
     Dosage: UNK, UNKNOWN
  5. AMLODIPINE [Concomitant]
     Dosage: UNK, UNKNOWN
  6. CALTRATE /00108001/ [Concomitant]
     Dosage: UNK, UNKNOWN
  7. ZYRTEC [Concomitant]
     Dosage: UNK, UNKNOWN

REACTIONS (1)
  - PALPITATIONS [None]
